FAERS Safety Report 9156440 (Version 1)
Quarter: 2013Q1

REPORT INFORMATION
  Report Type: Spontaneous
  Country: US (occurrence: None)
  Receive Date: 20130308
  Receipt Date: 20130308
  Transmission Date: 20140127
  Serious: Yes (Hospitalization)
  Sender: FDA-Public Use
  Company Number: None

PATIENT
  Age: 40 Year
  Sex: Male

DRUGS (7)
  1. VITAMIN A [Suspect]
     Indication: ACNE
     Dosage: 5,000 UNITS TWICE A DAY PO?DURATION: SEVERAL MONTHS
     Route: 048
  2. VITAMIN A [Suspect]
     Indication: SELF-MEDICATION
     Dosage: 5,000 UNITS TWICE A DAY PO?DURATION: SEVERAL MONTHS
     Route: 048
  3. ANABOLIC STEROIDS [Suspect]
     Indication: SELF-MEDICATION
     Route: 048
  4. AMOXICILLIN\CLAVULANATE [Concomitant]
  5. HYDROCHLOROTHIAZIDE [Concomitant]
  6. IBUPROFEN [Concomitant]
  7. LISINOPRIL [Concomitant]

REACTIONS (7)
  - Hypercalcaemia [None]
  - Renal failure acute [None]
  - Laboratory test abnormal [None]
  - Self-medication [None]
  - Toxicity to various agents [None]
  - Metabolic disorder [None]
  - Urinary tract infection staphylococcal [None]
